FAERS Safety Report 6547544-4 (Version None)
Quarter: 2010Q1

REPORT INFORMATION
  Report Type: 
  Country: None (occurrence: None)
  Receive Date: 20100122
  Receipt Date: 20100113
  Transmission Date: 20100710
  Serious: Yes (Death)
  Sender: FDA-Public Use
  Company Number: US-JNJFOC-20100105629

PATIENT
  Age: 49 Year
  Sex: Female

DRUGS (6)
  1. TRAMADOL [Suspect]
     Indication: SUICIDE ATTEMPT
     Route: 048
  2. CYCLOBENZAPRINE [Suspect]
     Indication: SUICIDE ATTEMPT
     Route: 048
  3. VENLAFAXINE [Suspect]
     Indication: SUICIDE ATTEMPT
     Route: 048
  4. LAMOTRIGINE [Suspect]
     Indication: SUICIDE ATTEMPT
     Route: 048
  5. BENZODIAZEPINE NOS [Suspect]
     Indication: SUICIDE ATTEMPT
     Route: 048
  6. HYDROXYZINE [Suspect]
     Indication: SUICIDE ATTEMPT
     Route: 048

REACTIONS (2)
  - COMPLETED SUICIDE [None]
  - DRUG TOXICITY [None]
